FAERS Safety Report 9082719 (Version 1)
Quarter: 2013Q1

REPORT INFORMATION
  Report Type: Report from Study
  Country: US (occurrence: US)
  Receive Date: 20130130
  Receipt Date: 20130130
  Transmission Date: 20140127
  Serious: No
  Sender: FDA-Public Use
  Company Number: US-ABBOTT-12P-163-0966772-00

PATIENT
  Sex: Male
  Weight: 108.05 kg

DRUGS (13)
  1. HUMIRA 40 MG/0.8 ML PEN [Suspect]
     Indication: RHEUMATOID ARTHRITIS
  2. HUMIRA 40 MG/0.8 ML PEN [Suspect]
     Dates: end: 201204
  3. PREDNISONE [Suspect]
     Indication: RHEUMATOID ARTHRITIS
     Dosage: 5MG ALTERNATING WITH 2.5MG ONCE A DAY
     Dates: start: 2012
  4. RITUXAN [Concomitant]
     Indication: RHEUMATOID ARTHRITIS
     Dates: start: 201204
  5. LEFLUNOMIDE [Concomitant]
     Indication: RHEUMATOID ARTHRITIS
  6. LISINOPRIL [Concomitant]
     Indication: HYPERTENSION
  7. NIFEDIPINE [Concomitant]
     Indication: HYPERTENSION
  8. METOPROLOL [Concomitant]
     Indication: HYPERTENSION
  9. ALLOPURINOL [Concomitant]
     Indication: GOUT
  10. SIMVASTATIN [Concomitant]
     Indication: PRODUCT USED FOR UNKNOWN INDICATION
  11. JANUMET [Concomitant]
     Indication: TYPE 2 DIABETES MELLITUS
  12. VITAMINS [Concomitant]
     Indication: VITAMIN SUPPLEMENTATION
  13. ASPIRIN [Concomitant]
     Indication: PRODUCT USED FOR UNKNOWN INDICATION

REACTIONS (7)
  - Weight increased [Not Recovered/Not Resolved]
  - Drug ineffective [Not Recovered/Not Resolved]
  - Joint swelling [Not Recovered/Not Resolved]
  - Local swelling [Not Recovered/Not Resolved]
  - Walking aid user [Unknown]
  - Sinusitis [Recovered/Resolved]
  - Pain [Not Recovered/Not Resolved]
